FAERS Safety Report 8381958-5 (Version None)
Quarter: 2012Q2

REPORT INFORMATION
  Report Type: 
  Country: None (occurrence: None)
  Receive Date: 20120522
  Receipt Date: 20120522
  Transmission Date: 20120825
  Serious: Yes (Other)
  Sender: FDA-Public Use
  Company Number: None

PATIENT
  Age: 76 Year
  Sex: Female
  Weight: 54.4316 kg

DRUGS (2)
  1. SKIN RENEW B.B. CREAM, MEDIUM GARNIER [Suspect]
     Indication: PROPHYLAXIS
     Dosage: SMALL DAB OF CREAM MORNING ONLY TOP
     Route: 061
     Dates: start: 20111101, end: 20120501
  2. SKIN RENEW B.B. CREAM, MEDIUM GARNIER [Suspect]
     Indication: SKIN DISORDER
     Dosage: SMALL DAB OF CREAM MORNING ONLY TOP
     Route: 061
     Dates: start: 20111101, end: 20120501

REACTIONS (3)
  - EXFOLIATIVE RASH [None]
  - OEDEMA [None]
  - RASH ERYTHEMATOUS [None]
